FAERS Safety Report 5060623-6 (Version None)
Quarter: 2006Q3

REPORT INFORMATION
  Report Type: 
  Country: None (occurrence: None)
  Receive Date: 20060720
  Receipt Date: 20060720
  Transmission Date: 20061208
  Serious: Yes (Hospitalization)
  Sender: FDA-Public Use
  Company Number: None

PATIENT
  Age: 65 Year
  Sex: Male
  Weight: 67.1324 kg

DRUGS (9)
  1. CARDIZEM [Suspect]
     Indication: ARRHYTHMIA SUPRAVENTRICULAR
     Dosage: 60 MG QID PO
     Route: 048
     Dates: start: 20060418, end: 20060719
  2. DILTIAZEM [Suspect]
     Indication: ATRIAL FIBRILLATION
     Dosage: 10 MG/125 MG/125 ML ONE TIME IV
     Route: 042
     Dates: start: 20060705, end: 20060705
  3. SIMVASTATIN [Concomitant]
  4. OMEPRAZOLE [Concomitant]
  5. GABAPENTIN [Concomitant]
  6. OLANZAPINE [Concomitant]
  7. SERTRALINE [Concomitant]
  8. DILTIAZEM HCL [Concomitant]
  9. BACLOFEN [Concomitant]

REACTIONS (12)
  - ANXIETY [None]
  - BLOOD PRESSURE FLUCTUATION [None]
  - CHILLS [None]
  - DRUG TOXICITY [None]
  - HEART RATE DECREASED [None]
  - HEART RATE INCREASED [None]
  - INCORRECT DOSE ADMINISTERED [None]
  - NERVOUSNESS [None]
  - PYREXIA [None]
  - RECURRENT CANCER [None]
  - TACHYCARDIA [None]
  - TONGUE NEOPLASM MALIGNANT STAGE UNSPECIFIED [None]
